FAERS Safety Report 5483995-7 (Version None)
Quarter: 2007Q4

REPORT INFORMATION
  Report Type: 
  Country: None (occurrence: None)
  Receive Date: 20071012
  Receipt Date: 20071003
  Transmission Date: 20080405
  Serious: Yes (Other)
  Sender: FDA-Public Use
  Company Number: US-SANOFI-SYNTHELABO-A03200705859

PATIENT
  Age: 17 Year
  Sex: Female

DRUGS (2)
  1. ANTIDEPRESSANT MEDICATION [Concomitant]
     Indication: DEPRESSION
     Dosage: UNK
     Route: 065
  2. AMBIEN [Suspect]
     Indication: INSOMNIA
     Dosage: UNK
     Route: 048

REACTIONS (1)
  - CONVULSION [None]
